FAERS Safety Report 7090762-X (Version None)
Quarter: 2010Q4

REPORT INFORMATION
  Report Type: 
  Country: None (occurrence: None)
  Receive Date: 20101012
  Receipt Date: 20100729
  Transmission Date: 20110411
  Serious: No
  Sender: FDA-Public Use
  Company Number: US_001240

PATIENT
  Sex: Female
  Weight: 36.2878 kg

DRUGS (1)
  1. KUVAN [Suspect]
     Indication: PHENYLKETONURIA
     Dosage: 800 MG QD, ORAL
     Route: 048

REACTIONS (4)
  - GASTRIC DISORDER [None]
  - HELICOBACTER INFECTION [None]
  - MALAISE [None]
  - OESOPHAGEAL CANDIDIASIS [None]
